FAERS Safety Report 4467760-5 (Version None)
Quarter: 2004Q4

REPORT INFORMATION
  Report Type: 
  Country: None (occurrence: None)
  Receive Date: 20041001
  Receipt Date: 20040914
  Transmission Date: 20050328
  Serious: Yes (Disabling)
  Sender: FDA-Public Use
  Company Number: 29407

PATIENT
  Age: 54 Year
  Sex: Female

DRUGS (3)
  1. PHENYLEPHRINE 2.5% [Suspect]
     Indication: FUNDOSCOPY
     Dosage: 1 GTT ONCE OPHT
     Route: 047
  2. TROPICAMIDE [Concomitant]
  3. PREDNISONE [Concomitant]

REACTIONS (3)
  - BLINDNESS [None]
  - EYE SWELLING [None]
  - OPTIC NERVE SHEATH HAEMORRHAGE [None]
